FAERS Safety Report 12489304 (Version 1)
Quarter: 2016Q2

REPORT INFORMATION
  Report Type: Spontaneous
  Country: US (occurrence: US)
  Receive Date: 20160622
  Receipt Date: 20160622
  Transmission Date: 20160815
  Serious: No
  Sender: FDA-Public Use
  Company Number: US-TEVA-666877USA

PATIENT
  Age: 50 Year
  Sex: Female

DRUGS (19)
  1. VESICARE [Concomitant]
     Active Substance: SOLIFENACIN SUCCINATE
  2. MECLIZINE [Concomitant]
     Active Substance: MECLIZINE HYDROCHLORIDE
  3. SIMVASTATIN. [Concomitant]
     Active Substance: SIMVASTATIN
  4. PRAZOSIN [Concomitant]
     Active Substance: PRAZOSIN
  5. BISACODYL. [Concomitant]
     Active Substance: BISACODYL
  6. RANITIDINE. [Concomitant]
     Active Substance: RANITIDINE
  7. TAMSULOSIN [Concomitant]
     Active Substance: TAMSULOSIN
  8. RANITIDINE. [Concomitant]
     Active Substance: RANITIDINE
  9. COPAXONE [Suspect]
     Active Substance: GLATIRAMER ACETATE
     Indication: MULTIPLE SCLEROSIS
     Route: 058
     Dates: start: 201505
  10. IBUPROFEN. [Concomitant]
     Active Substance: IBUPROFEN
  11. VALACYCLOVIR [Concomitant]
     Active Substance: VALACYCLOVIR HYDROCHLORIDE
  12. IRBESARTAN. [Concomitant]
     Active Substance: IRBESARTAN
  13. BACLOFEN. [Concomitant]
     Active Substance: BACLOFEN
  14. TRAZODONE [Concomitant]
     Active Substance: TRAZODONE HYDROCHLORIDE
  15. CITALOPRAM [Concomitant]
     Active Substance: CITALOPRAM HYDROBROMIDE
  16. PAXIL [Concomitant]
     Active Substance: PAROXETINE HYDROCHLORIDE
  17. DESMOPRESSIN [Concomitant]
     Active Substance: DESMOPRESSIN
  18. METFORMIN [Concomitant]
     Active Substance: METFORMIN HYDROCHLORIDE
  19. DEXILANT [Concomitant]
     Active Substance: DEXLANSOPRAZOLE

REACTIONS (2)
  - Foot fracture [Unknown]
  - Fall [Unknown]

NARRATIVE: CASE EVENT DATE: 201605
